FAERS Safety Report 7797339-9 (Version None)
Quarter: 2011Q4

REPORT INFORMATION
  Report Type: 
  Country: None (occurrence: None)
  Receive Date: 20111003
  Receipt Date: 20110922
  Transmission Date: 20120403
  Serious: Yes (Hospitalization, Other)
  Sender: FDA-Public Use
  Company Number: 2011P1009038

PATIENT
  Age: 45 Year
  Sex: Male

DRUGS (2)
  1. ALBENDAZOLE (NO PREF. NAME) [Suspect]
     Indication: FILARIASIS LYMPHATIC
     Dosage: 1 TABLET
     Dates: start: 20110831
  2. MECTIZAN [Suspect]
     Indication: FILARIASIS LYMPHATIC
     Dosage: 4 TABLETS
     Dates: start: 20110831

REACTIONS (7)
  - GAIT DISTURBANCE [None]
  - OCULAR HYPERAEMIA [None]
  - BLOOD GLUCOSE INCREASED [None]
  - BACK PAIN [None]
  - DYSARTHRIA [None]
  - ASTHENIA [None]
  - CHILLS [None]
